FAERS Safety Report 7073642-5 (Version None)
Quarter: 2010Q4

REPORT INFORMATION
  Report Type: 
  Country: None (occurrence: None)
  Receive Date: 20101029
  Receipt Date: 20100723
  Transmission Date: 20110411
  Serious: No
  Sender: FDA-Public Use
  Company Number: A0872111A

PATIENT
  Age: 80 Year
  Sex: Female

DRUGS (6)
  1. ADVAIR DISKUS 100/50 [Suspect]
     Indication: CHRONIC OBSTRUCTIVE PULMONARY DISEASE
     Dosage: 1PUFF TWICE PER DAY
     Route: 055
     Dates: start: 19980101
  2. ADVAIR DISKUS 100/50 [Suspect]
     Dosage: 1PUFF TWICE PER DAY
     Route: 055
     Dates: start: 20090801
  3. ASPIRIN [Concomitant]
  4. VITAMIN TAB [Concomitant]
  5. HYDROCHLOROTHIAZIDE [Concomitant]
  6. ALLERGY MEDICATION [Concomitant]

REACTIONS (3)
  - CANDIDIASIS [None]
  - GLOSSITIS [None]
  - GLOSSODYNIA [None]
